FAERS Safety Report 6435434-7 (Version None)
Quarter: 2009Q4

REPORT INFORMATION
  Report Type: 
  Country: None (occurrence: None)
  Receive Date: 20091106
  Receipt Date: 20091021
  Transmission Date: 20100525
  Serious: Yes (Death, Hospitalization)
  Sender: FDA-Public Use
  Company Number: JPI-P-008793

PATIENT
  Age: 68 Year
  Sex: Female

DRUGS (2)
  1. XYREM [Suspect]
     Indication: MYOCLONUS
     Dosage: 7.5 GM (2.5 GM, 3 IN 1 D), ORAL; (10 GM), ORAL
     Route: 048
     Dates: start: 20050629
  2. XYREM [Suspect]
     Indication: MYOCLONUS
     Dosage: 7.5 GM (2.5 GM, 3 IN 1 D), ORAL; (10 GM), ORAL
     Route: 048
     Dates: start: 20090904

REACTIONS (3)
  - ASPIRATION [None]
  - CARDIO-RESPIRATORY ARREST [None]
  - CHOKING [None]
